FAERS Safety Report 5936159-4 (Version None)
Quarter: 2008Q4

REPORT INFORMATION
  Report Type: 
  Country: None (occurrence: None)
  Receive Date: 20081030
  Receipt Date: 20081023
  Transmission Date: 20090506
  Serious: Yes (Death, Hospitalization, Other)
  Sender: FDA-Public Use
  Company Number: US-AMGEN-US295403

PATIENT
  Sex: Male
  Weight: 78.5 kg

DRUGS (1)
  1. ARANESP [Suspect]
     Indication: RENAL FAILURE CHRONIC
     Route: 058
     Dates: start: 20080216, end: 20080516

REACTIONS (3)
  - CARDIAC ARREST [None]
  - EPISTAXIS [None]
  - REFRACTORY ANAEMIA [None]
